FAERS Safety Report 25654584 (Version 1)
Quarter: 2025Q3

REPORT INFORMATION
  Report Type: Spontaneous
  Country: US (occurrence: US)
  Receive Date: 20250807
  Receipt Date: 20250807
  Transmission Date: 20251020
  Serious: No
  Sender: TAKEDA
  Company Number: US-TAKEDA-2025TUS069374

PATIENT
  Sex: Female

DRUGS (2)
  1. ENTYVIO [Suspect]
     Active Substance: VEDOLIZUMAB
     Indication: Crohn^s disease
  2. B12 [Concomitant]
     Indication: Supplementation therapy

REACTIONS (2)
  - Abdominal pain upper [Recovering/Resolving]
  - Arthralgia [Recovering/Resolving]
